FAERS Safety Report 5726881-7 (Version None)
Quarter: 2008Q2

REPORT INFORMATION
  Report Type: 
  Country: None (occurrence: None)
  Receive Date: 20080502
  Receipt Date: 20080423
  Transmission Date: 20081010
  Serious: Yes (Other)
  Sender: FDA-Public Use
  Company Number: BR-PFIZER INC-2008036255

PATIENT
  Age: 66 Year
  Sex: Female

DRUGS (1)
  1. CELEBRA [Suspect]
     Indication: ARTHRITIS

REACTIONS (1)
  - CHONDROPATHY [None]
